FAERS Safety Report 7291166-7 (Version None)
Quarter: 2011Q1

REPORT INFORMATION
  Report Type: 
  Country: None (occurrence: None)
  Receive Date: 20110214
  Receipt Date: 20110207
  Transmission Date: 20110831
  Serious: Yes (Other)
  Sender: FDA-Public Use
  Company Number: FR-MERCK-1102FRA00051

PATIENT
  Age: 67 Year
  Sex: Female
  Weight: 67 kg

DRUGS (6)
  1. PRAZOSIN HYDROCHLORIDE [Concomitant]
     Indication: HYPERTENSION
     Route: 048
  2. ATENOLOL [Concomitant]
     Indication: HYPERTENSION
     Route: 048
  3. SIMVASTATIN [Concomitant]
     Indication: HYPERCHOLESTEROLAEMIA
     Route: 048
  4. JANUMET [Suspect]
     Indication: TYPE 2 DIABETES MELLITUS
     Route: 048
     Dates: start: 20100430, end: 20101007
  5. POTASSIUM CHLORIDE [Concomitant]
     Indication: BLOOD POTASSIUM DECREASED
     Route: 048
  6. FUROSEMIDE AND SPIRONOLACTONE [Concomitant]
     Indication: HYPERTENSION
     Route: 048

REACTIONS (1)
  - LUNG ADENOCARCINOMA [None]
